FAERS Safety Report 13298769 (Version 2)
Quarter: 2017Q1

REPORT INFORMATION
  Report Type: Spontaneous
  Country: US (occurrence: US)
  Receive Date: 20170306
  Receipt Date: 20170310
  Transmission Date: 20170428
  Serious: No
  Sender: FDA-Public Use
  Company Number: US-009507513-1702USA009792

PATIENT
  Age: 42 Year
  Sex: Female
  Weight: 61.22 kg

DRUGS (3)
  1. IBUPROFEN. [Concomitant]
     Active Substance: IBUPROFEN
     Indication: PRODUCT USED FOR UNKNOWN INDICATION
     Dosage: 800 MG, UNKNOWN
     Route: 065
  2. [THERAPY UNSPECIFIED] CYCLOBNZATAR [Concomitant]
     Indication: PRODUCT USED FOR UNKNOWN INDICATION
     Dosage: 10 MG, UNKNOWN
     Route: 065
  3. NEXPLANON [Suspect]
     Active Substance: ETONOGESTREL
     Indication: OFF LABEL USE
     Dosage: 1 DF, 3 YEAR IMPLANT
     Route: 065
     Dates: start: 20161108

REACTIONS (1)
  - Pain in extremity [Not Recovered/Not Resolved]
